FAERS Safety Report 7564824-4 (Version None)
Quarter: 2011Q2

REPORT INFORMATION
  Report Type: 
  Country: None (occurrence: None)
  Receive Date: 20110622
  Receipt Date: 20110121
  Transmission Date: 20111010
  Serious: Yes (Other)
  Sender: FDA-Public Use
  Company Number: US-MYLANLABS-2010S1023169

PATIENT
  Age: 56 Year
  Sex: Male

DRUGS (14)
  1. KEPPRA [Concomitant]
  2. OMEPRAZOLE [Concomitant]
  3. DOCUSATE [Concomitant]
  4. ATIVAN [Concomitant]
  5. SIMVASTATIN [Concomitant]
  6. LISINOPRIL [Concomitant]
  7. LASIX [Concomitant]
  8. RISPERDAL [Concomitant]
  9. CLOZAPINE [Suspect]
     Route: 048
     Dates: end: 20101230
  10. CLOZAPINE [Suspect]
     Route: 048
     Dates: end: 20101230
  11. METFORMIN HCL [Concomitant]
  12. CLONAZEPAM [Concomitant]
  13. LITHIUM [Concomitant]
  14. BENZTROPINE MESYLATE [Concomitant]

REACTIONS (2)
  - GRANULOCYTOPENIA [None]
  - LEUKOPENIA [None]
